FAERS Safety Report 5600066-7 (Version None)
Quarter: 2008Q1

REPORT INFORMATION
  Report Type: 
  Country: None (occurrence: None)
  Receive Date: 20080123
  Receipt Date: 20080117
  Transmission Date: 20080703
  Serious: Yes (Other)
  Sender: FDA-Public Use
  Company Number: A0703298A

PATIENT
  Age: 40 Year
  Sex: Female
  Weight: 113.6 kg

DRUGS (2)
  1. ALLI [Suspect]
     Indication: WEIGHT LOSS DIET
     Route: 048
     Dates: end: 20080111
  2. INDOMETHACIN [Concomitant]

REACTIONS (15)
  - ABDOMINAL DISTENSION [None]
  - ANAL HAEMORRHAGE [None]
  - ANOREXIA [None]
  - DEFAECATION URGENCY [None]
  - DIARRHOEA [None]
  - DIARRHOEA HAEMORRHAGIC [None]
  - FAECAL INCONTINENCE [None]
  - FLATULENCE [None]
  - FREQUENT BOWEL MOVEMENTS [None]
  - HAEMATOCHEZIA [None]
  - PHARYNGOLARYNGEAL PAIN [None]
  - PROCTALGIA [None]
  - RECTAL TENESMUS [None]
  - STOMACH DISCOMFORT [None]
  - VOMITING [None]
